FAERS Safety Report 6164269-8 (Version None)
Quarter: 2009Q2

REPORT INFORMATION
  Report Type: 
  Country: None (occurrence: None)
  Receive Date: 20090422
  Receipt Date: 20090416
  Transmission Date: 20091009
  Serious: No
  Sender: FDA-Public Use
  Company Number: US-B.I. PHARMACEUTICALS,INC./RIDGEFIELD-2009-BP-03360BP

PATIENT
  Sex: Male

DRUGS (6)
  1. SPIRIVA [Suspect]
     Indication: CHRONIC OBSTRUCTIVE PULMONARY DISEASE
     Dosage: 18MCG
     Dates: start: 20081201, end: 20090101
  2. SPIRIVA [Suspect]
     Indication: EMPHYSEMA
  3. SPIRIVA [Suspect]
     Indication: BRONCHITIS CHRONIC
  4. XOPENEX [Concomitant]
     Indication: DYSPNOEA
     Route: 055
  5. BLOOD PRESSURE MEDICATION [Concomitant]
  6. CHOLESTEROL MEDICATION [Concomitant]

REACTIONS (1)
  - DRUG INEFFECTIVE [None]
